FAERS Safety Report 8111020-8 (Version None)
Quarter: 2012Q1

REPORT INFORMATION
  Report Type: 
  Country: None (occurrence: None)
  Receive Date: 20120203
  Receipt Date: 20110216
  Transmission Date: 20120608
  Serious: No
  Sender: FDA-Public Use
  Company Number: US-GLAXOSMITHKLINE-A0913984A

PATIENT
  Age: 30 Year
  Sex: Female

DRUGS (5)
  1. RANITIDINE [Concomitant]
  2. PROZAC [Concomitant]
  3. UNKNOWN MEDICATION [Concomitant]
  4. LAMOTRIGINE [Suspect]
     Indication: BIPOLAR DISORDER
     Dosage: 150MG PER DAY
     Route: 048
     Dates: start: 20100101
  5. ADDERALL 5 [Concomitant]

REACTIONS (4)
  - RASH MACULO-PAPULAR [None]
  - DRY SKIN [None]
  - SKIN DISCOLOURATION [None]
  - RASH PRURITIC [None]
